FAERS Safety Report 9587053 (Version 2)
Quarter: 2013Q4

REPORT INFORMATION
  Report Type: Spontaneous
  Country: CH (occurrence: CH)
  Receive Date: 20131003
  Receipt Date: 20131122
  Transmission Date: 20140711
  Serious: Yes (Hospitalization)
  Sender: FDA-Public Use
  Company Number: CH-GLAXOSMITHKLINE-B0926626A

PATIENT
  Age: 22 Year
  Sex: Female
  Weight: 69 kg

DRUGS (4)
  1. BENLYSTA [Suspect]
     Indication: SYSTEMIC LUPUS ERYTHEMATOSUS
     Route: 042
     Dates: start: 20120829, end: 20130611
  2. STEROIDS [Concomitant]
     Indication: SYSTEMIC LUPUS ERYTHEMATOSUS
  3. PLAQUENIL [Concomitant]
     Indication: SYSTEMIC LUPUS ERYTHEMATOSUS
     Dosage: 200U PER DAY
     Route: 048
  4. PREDNISOLON [Concomitant]
     Indication: SYSTEMIC LUPUS ERYTHEMATOSUS
     Dosage: 20MG PER DAY

REACTIONS (5)
  - Pancytopenia [Recovering/Resolving]
  - Systemic lupus erythematosus [Recovered/Resolved]
  - Condition aggravated [Recovered/Resolved]
  - Tachycardia [Unknown]
  - Cough [Unknown]
